FAERS Safety Report 6544041-7 (Version None)
Quarter: 2010Q1

REPORT INFORMATION
  Report Type: 
  Country: None (occurrence: None)
  Receive Date: 20100120
  Receipt Date: 20100107
  Transmission Date: 20100710
  Serious: Yes (Hospitalization)
  Sender: FDA-Public Use
  Company Number: CN-GENENTECH-296998

PATIENT
  Sex: Male
  Weight: 74 kg

DRUGS (1)
  1. RANIBIZUMAB [Suspect]
     Indication: MACULAR DEGENERATION
     Dosage: 50 A?L, 1/MONTH
     Route: 031
     Dates: start: 20090721

REACTIONS (1)
  - CORONARY ARTERY DISEASE [None]
